FAERS Safety Report 8409479-1 (Version None)
Quarter: 2012Q2

REPORT INFORMATION
  Report Type: 
  Country: None (occurrence: None)
  Receive Date: 20120531
  Receipt Date: 20120531
  Transmission Date: 20120825
  Serious: Yes (Hospitalization)
  Sender: FDA-Public Use
  Company Number: None

PATIENT
  Sex: Female
  Weight: 48.0813 kg

DRUGS (1)
  1. DEPO-MEDROL [Suspect]
     Dosage: 40MG Q12H IV  2 DOSES GIVEN
     Route: 042
     Dates: start: 20120522, end: 20120522

REACTIONS (4)
  - THROMBOSIS [None]
  - WRONG DRUG ADMINISTERED [None]
  - DRUG DISPENSING ERROR [None]
  - MEDICATION ERROR [None]
